FAERS Safety Report 5423808-2 (Version None)
Quarter: 2007Q3

REPORT INFORMATION
  Report Type: 
  Country: None (occurrence: None)
  Receive Date: 20070823
  Receipt Date: 20070815
  Transmission Date: 20080115
  Serious: Yes (Hospitalization)
  Sender: FDA-Public Use
  Company Number: US-ELI_LILLY_AND_COMPANY-US200708003216

PATIENT
  Age: 83 Year
  Sex: Female

DRUGS (2)
  1. BYETTA [Suspect]
     Indication: TYPE 2 DIABETES MELLITUS
     Dosage: 5 UG, 2/D
     Route: 058
     Dates: start: 20060601
  2. GLUCOPHAGE [Concomitant]
     Dosage: UNK, UNKNOWN
     Dates: end: 20070701

REACTIONS (7)
  - BLOOD DISORDER [None]
  - CONSTIPATION [None]
  - DIARRHOEA [None]
  - ERYTHEMA [None]
  - GASTROINTESTINAL MOTILITY DISORDER [None]
  - OEDEMA PERIPHERAL [None]
  - PAIN IN EXTREMITY [None]
